FAERS Safety Report 21132214 (Version 2)
Quarter: 2022Q3

REPORT INFORMATION
  Report Type: Report from Study
  Country: US (occurrence: US)
  Receive Date: 20220726
  Receipt Date: 20220831
  Transmission Date: 20221027
  Serious: Yes (Other)
  Sender: FDA-Public Use
  Company Number: US-PFIZER INC-PV202200027318

PATIENT
  Age: 67 Year
  Sex: Female

DRUGS (3)
  1. PAXLOVID [Suspect]
     Active Substance: NIRMATRELVIR\RITONAVIR
     Indication: COVID-19 treatment
     Dosage: 5 DAY PACK
     Dates: start: 202205, end: 202205
  2. VENCLEXTA [Suspect]
     Active Substance: VENETOCLAX
     Indication: Chronic lymphocytic leukaemia
     Dosage: TOOK OFF VENCLEXTA FOR THREE WEEKS
     Route: 048
     Dates: end: 2022
  3. VENCLEXTA [Suspect]
     Active Substance: VENETOCLAX
     Indication: B-cell small lymphocytic lymphoma

REACTIONS (11)
  - Pulmonary fibrosis [Not Recovered/Not Resolved]
  - Immunodeficiency [Recovering/Resolving]
  - Pulmonary oedema [Not Recovered/Not Resolved]
  - Pneumonia [Not Recovered/Not Resolved]
  - General physical health deterioration [Recovering/Resolving]
  - Decreased appetite [Recovering/Resolving]
  - Fatigue [Recovering/Resolving]
  - Weight decreased [Recovering/Resolving]
  - COVID-19 [Not Recovered/Not Resolved]
  - Disease recurrence [Not Recovered/Not Resolved]
  - Dyspnoea [Unknown]

NARRATIVE: CASE EVENT DATE: 20220501
